FAERS Safety Report 5757779-6 (Version None)
Quarter: 2008Q2

REPORT INFORMATION
  Report Type: 
  Country: None (occurrence: None)
  Receive Date: 20080603
  Receipt Date: 20080324
  Transmission Date: 20081010
  Serious: Yes (Other)
  Sender: FDA-Public Use
  Company Number: PHBS2008US03630

PATIENT

DRUGS (1)
  1. IMATINIB MESYLATE [Suspect]
     Indication: CHRONIC MYELOID LEUKAEMIA

REACTIONS (3)
  - BLAST CELL CRISIS [None]
  - PANCYTOPENIA [None]
  - PRECURSOR T-LYMPHOBLASTIC LYMPHOMA/LEUKAEMIA [None]
